FAERS Safety Report 25195090 (Version 1)
Quarter: 2025Q2

REPORT INFORMATION
  Report Type: Spontaneous
  Country: US (occurrence: US)
  Receive Date: 20250415
  Receipt Date: 20250415
  Transmission Date: 20250717
  Serious: No
  Sender: MSN LABORATORIES
  Company Number: US-MSNLABS-2025MSNSPO00816

PATIENT

DRUGS (1)
  1. DOFETILIDE [Suspect]
     Active Substance: DOFETILIDE
     Indication: Cardiac disorder
     Dosage: TWICE DAILY BY MOUTH (TO BE TAKEN AT 8:45 IN THE MORNING AND 8:45 AT NIGHT)
     Route: 048

REACTIONS (2)
  - Accidental exposure to product [Unknown]
  - Extra dose administered [Unknown]
